FAERS Safety Report 8433544-6 (Version None)
Quarter: 2012Q2

REPORT INFORMATION
  Report Type: 
  Country: None (occurrence: None)
  Receive Date: 20120613
  Receipt Date: 20120607
  Transmission Date: 20120825
  Serious: Yes (Hospitalization)
  Sender: FDA-Public Use
  Company Number: TR-BRISTOL-MYERS SQUIBB COMPANY-16671810

PATIENT
  Age: 42 Year
  Sex: Male
  Weight: 68 kg

DRUGS (5)
  1. VITAMIN B-12 [Concomitant]
     Dates: start: 20120425
  2. FOLIC ACID [Concomitant]
     Dates: start: 20120428
  3. DEXAMETHASONE [Concomitant]
     Dates: start: 20120429, end: 20120505
  4. CISPLATIN [Suspect]
     Indication: NON-SMALL CELL LUNG CANCER
     Route: 042
     Dates: start: 20120430
  5. PEMETREXED DISODIUM [Suspect]
     Indication: NON-SMALL CELL LUNG CANCER
     Dosage: VIAL
     Route: 042
     Dates: start: 20120430

REACTIONS (1)
  - OESOPHAGITIS [None]
